FAERS Safety Report 24584406 (Version 1)
Quarter: 2024Q4

REPORT INFORMATION
  Report Type: Spontaneous
  Country: AU (occurrence: AU)
  Receive Date: 20241106
  Receipt Date: 20241106
  Transmission Date: 20250115
  Serious: Yes (Hospitalization, Other)
  Sender: ALEXION PHARMACEUTICALS
  Company Number: AU-AstraZeneca-CH-00726355A

PATIENT
  Age: 78 Year
  Weight: 87 kg

DRUGS (4)
  1. DAPAGLIFLOZIN [Suspect]
     Active Substance: DAPAGLIFLOZIN
     Indication: Type 2 diabetes mellitus
     Dosage: 10 MILLIGRAM, QD
  2. GLICLAZIDE [Concomitant]
     Active Substance: GLICLAZIDE
  3. ROSUVASTATIN [Concomitant]
     Active Substance: ROSUVASTATIN
  4. DAROLUTAMIDE [Concomitant]
     Active Substance: DAROLUTAMIDE

REACTIONS (1)
  - Pancreatitis acute [Recovered/Resolved with Sequelae]
